FAERS Safety Report 19859149 (Version 4)
Quarter: 2022Q2

REPORT INFORMATION
  Report Type: Spontaneous
  Country: US (occurrence: US)
  Receive Date: 20210921
  Receipt Date: 20220428
  Transmission Date: 20220721
  Serious: Yes (Other)
  Sender: FDA-Public Use
  Company Number: US-CELLTRION INC.-2020US028444

PATIENT

DRUGS (3)
  1. INFLECTRA [Suspect]
     Active Substance: INFLIXIMAB-DYYB
     Indication: Neurosarcoidosis
     Dosage: 7.5 MG/KG ONCE OVER 2.5 HOURS
     Route: 042
  2. INFLECTRA [Suspect]
     Active Substance: INFLIXIMAB-DYYB
     Indication: Myelitis transverse
     Dosage: 800MG, EVERY 6 WEEKS (QUANTITY: 160 ML REFILLS: 9)
  3. INFLECTRA [Suspect]
     Active Substance: INFLIXIMAB-DYYB
     Dosage: 7.5/KG OVER 2 HOURS (QUANTITY: 660 MG REFILLS: 1, 7 VIALS)

REACTIONS (3)
  - Myelitis transverse [Unknown]
  - Neurosarcoidosis [Unknown]
  - Off label use [Unknown]
